FAERS Safety Report 19866153 (Version 1)
Quarter: 2021Q3

REPORT INFORMATION
  Report Type: Spontaneous
  Country: US (occurrence: US)
  Receive Date: 20210921
  Receipt Date: 20210921
  Transmission Date: 20211014
  Serious: Yes (Other)
  Sender: FDA-Public Use
  Company Number: US-CLOVIS ONCOLOGY-CLO-2021-001397

PATIENT
  Age: 58 Year
  Sex: Female

DRUGS (2)
  1. RUBRACA [Suspect]
     Active Substance: RUCAPARIB CAMSYLATE
     Dosage: 300 MILLIGRAM, QD
     Route: 048
     Dates: end: 202109
  2. RUBRACA [Suspect]
     Active Substance: RUCAPARIB CAMSYLATE
     Indication: CERVIX CARCINOMA
     Dosage: 600 MILLIGRAM, BID
     Route: 048
     Dates: start: 2017, end: 202109

REACTIONS (4)
  - Platelet count decreased [Unknown]
  - Blood count abnormal [Unknown]
  - Product use in unapproved indication [Unknown]
  - Recurrent cancer [Unknown]

NARRATIVE: CASE EVENT DATE: 202109
